FAERS Safety Report 5873977-5 (Version None)
Quarter: 2008Q3

REPORT INFORMATION
  Report Type: 
  Country: None (occurrence: None)
  Receive Date: 20080908
  Receipt Date: 20080903
  Transmission Date: 20090109
  Serious: Yes (Hospitalization)
  Sender: FDA-Public Use
  Company Number: US-MERCK-0809USA00455

PATIENT
  Age: 76 Year
  Sex: Male

DRUGS (11)
  1. JANUVIA [Suspect]
     Indication: TYPE 2 DIABETES MELLITUS
     Route: 048
     Dates: start: 20080601
  2. JANUVIA [Suspect]
     Route: 048
  3. XANTHOPHYLL [Concomitant]
     Route: 065
  4. GLIPIZIDE [Concomitant]
     Route: 065
  5. FINASTERIDE [Concomitant]
     Route: 065
  6. CITALOPRAM [Concomitant]
     Route: 065
  7. LANTUS [Concomitant]
     Route: 065
  8. ASPIRIN [Concomitant]
     Route: 065
  9. FLOMAX [Concomitant]
     Route: 065
  10. FUROSEMIDE [Concomitant]
     Route: 065
  11. METOPROLOL [Concomitant]
     Route: 065

REACTIONS (1)
  - PNEUMONIA [None]
